FAERS Safety Report 5007322-4 (Version None)
Quarter: 2006Q2

REPORT INFORMATION
  Report Type: 
  Country: None (occurrence: None)
  Receive Date: 20060518
  Receipt Date: 20060518
  Transmission Date: 20061013
  Serious: Yes (Hospitalization)
  Sender: FDA-Public Use
  Company Number: None

PATIENT
  Age: 77 Year
  Sex: Male
  Weight: 94.5 kg

DRUGS (14)
  1. MS CONTIN [Suspect]
  2. OXYCODONE 5MG/ACETAMINOPHEN [Concomitant]
  3. CALCITONIN-SALMON [Concomitant]
  4. MORPHINE [Concomitant]
  5. ALENDRONATE SODIUM [Concomitant]
  6. SIMVASTATIN [Concomitant]
  7. CALCIUM/VITAMIN D [Concomitant]
  8. INSULIN REG HUMAN 100 UNIT/ML NOVOLIN R [Concomitant]
  9. LOSARTAN POTASSIUM [Concomitant]
  10. METFORMIN [Concomitant]
  11. INSULIN NH HUMAN INJ [Concomitant]
  12. PROPRANOLOL [Concomitant]
  13. DILTIAZEM [Concomitant]
  14. BICALUTAMIDE [Concomitant]

REACTIONS (2)
  - DELIRIUM [None]
  - LETHARGY [None]
